FAERS Safety Report 26138245 (Version 1)
Quarter: 2025Q4

REPORT INFORMATION
  Report Type: Spontaneous
  Country: EU (occurrence: EU)
  Receive Date: 20251210
  Receipt Date: 20251210
  Transmission Date: 20260117
  Serious: Yes (Other)
  Sender: AUROBINDO
  Company Number: EU-VIIV HEALTHCARE ULC-PT2025EME151328

PATIENT
  Sex: Female

DRUGS (2)
  1. ABACAVIR\LAMIVUDINE [Suspect]
     Active Substance: ABACAVIR\LAMIVUDINE
     Indication: HIV infection
     Dosage: UNK
     Route: 065
  2. RILPIVIRINE [Suspect]
     Active Substance: RILPIVIRINE
     Indication: HIV infection
     Dosage: UNK
     Route: 065

REACTIONS (3)
  - Type 2 diabetes mellitus [Unknown]
  - Osteoporosis [Unknown]
  - Hypertension [Unknown]
